FAERS Safety Report 4887625-4 (Version None)
Quarter: 2006Q1

REPORT INFORMATION
  Report Type: 
  Country: None (occurrence: None)
  Receive Date: 20060123
  Receipt Date: 20060113
  Transmission Date: 20060701
  Serious: Yes (Hospitalization)
  Sender: FDA-Public Use
  Company Number: US-JNJFOC-20051003235

PATIENT
  Sex: Female
  Weight: 37.65 kg

DRUGS (7)
  1. REMICADE [Suspect]
     Indication: CROHN'S DISEASE
     Route: 042
  2. METOPROLOL [Concomitant]
     Indication: BLOOD PRESSURE
     Dosage: ^ A WEEK AGO^
  3. FLUCONAZOLE [Concomitant]
     Indication: ANTIFUNGAL PROPHYLAXIS
     Dosage: ^A WEEK AGO^
  4. PROTONIX [Concomitant]
     Indication: GASTROINTESTINAL DISORDER THERAPY
     Dosage: 1 WEEK
  5. BACTRIM [Concomitant]
  6. BACTRIM [Concomitant]
     Dosage: 1 WEEK
  7. ERGOCALCIFEROL [Concomitant]
     Indication: VITAMIN SUPPLEMENTATION
     Dosage: 3 WEEKS

REACTIONS (1)
  - DIFFUSE LARGE B-CELL LYMPHOMA [None]
